FAERS Safety Report 12478101 (Version 1)
Quarter: 2016Q2

REPORT INFORMATION
  Report Type: Report from Study
  Country: GB (occurrence: GB)
  Receive Date: 20160617
  Receipt Date: 20160617
  Transmission Date: 20160815
  Serious: Yes (Hospitalization, Other)
  Sender: FDA-Public Use
  Company Number: PHFR2016GB004843

PATIENT
  Age: 71 Year
  Sex: Male
  Weight: 93.9 kg

DRUGS (7)
  1. HYDROCORTISONE CREAM (B.P.C.,B.N.F.) [Concomitant]
     Active Substance: HYDROCORTISONE ACETATE
     Indication: RASH
     Dosage: UNK UNK, BID, PRN
     Route: 061
  2. AMLODIPINE [Concomitant]
     Active Substance: AMLODIPINE BESYLATE
     Indication: HYPERTENSION
     Dosage: UNK UNK, QD
     Route: 048
  3. LOPERAMIDE [Concomitant]
     Active Substance: LOPERAMIDE
     Indication: DIARRHOEA
     Dosage: 2 UNK, UNK
     Route: 048
  4. AFINITOR [Suspect]
     Active Substance: EVEROLIMUS
     Indication: PANCREATIC NEUROENDOCRINE TUMOUR
     Dosage: UNK
     Route: 048
  5. XITRIN [Concomitant]
     Indication: DYSURIA
     Dosage: 1 UNK, BID
     Route: 048
     Dates: start: 20160510
  6. SILDENAFIL. [Concomitant]
     Active Substance: SILDENAFIL
     Indication: ERECTILE DYSFUNCTION
     Dosage: 1 DF, UNK
     Route: 048
  7. ROWATINEX [Concomitant]
     Active Substance: HERBALS
     Indication: NEPHROLITHIASIS
     Dosage: 1 UNK, TID
     Route: 048
     Dates: start: 20160510

REACTIONS (13)
  - Pancreatic mass [Unknown]
  - Spinal osteoarthritis [Unknown]
  - Nephrolithiasis [Recovered/Resolved with Sequelae]
  - Tumour invasion [Unknown]
  - Pancreatic calcification [Unknown]
  - Ureteric dilatation [Unknown]
  - Metastases to kidney [Unknown]
  - Pyelocaliectasis [Unknown]
  - Renal impairment [Unknown]
  - Splenic vein occlusion [Unknown]
  - Lymphadenopathy [Unknown]
  - Ureterolithiasis [Unknown]
  - Necrosis [Unknown]

NARRATIVE: CASE EVENT DATE: 20160510
